FAERS Safety Report 13995329 (Version 1)
Quarter: 2017Q3

REPORT INFORMATION
  Report Type: Spontaneous
  Country: US (occurrence: None)
  Receive Date: 20170921
  Receipt Date: 20170921
  Transmission Date: 20171128
  Serious: Yes (Hospitalization, Other)
  Sender: FDA-Public Use
  Company Number: None

PATIENT
  Age: 73 Year
  Sex: Female
  Weight: 114.76 kg

DRUGS (1)
  1. XELJANZ [Suspect]
     Active Substance: TOFACITINIB CITRATE
     Indication: ARTHROPATHY
     Route: 048
     Dates: start: 20161101, end: 20170701

REACTIONS (2)
  - Staphylococcal sepsis [None]
  - Arthritis bacterial [None]

NARRATIVE: CASE EVENT DATE: 20170714
